FAERS Safety Report 17137672 (Version 3)
Quarter: 2024Q2

REPORT INFORMATION
  Report Type: Report from Study
  Country: US (occurrence: US)
  Receive Date: 20191211
  Receipt Date: 20240402
  Transmission Date: 20240716
  Serious: Yes (Death, Other)
  Sender: FDA-Public Use
  Company Number: US-SHIRE-US201942363

PATIENT
  Sex: Female

DRUGS (2)
  1. LANADELUMAB [Suspect]
     Active Substance: LANADELUMAB
     Indication: Hereditary angioedema
     Dosage: 300 MILLIGRAM, Q2WEEKS
     Route: 058
     Dates: start: 20181018
  2. LANADELUMAB [Suspect]
     Active Substance: LANADELUMAB
     Dosage: UNK UNK, Q4WEEKS
     Route: 058

REACTIONS (4)
  - Death [Fatal]
  - Hereditary angioedema [Unknown]
  - Malaise [Unknown]
  - Inappropriate schedule of product administration [Unknown]
